FAERS Safety Report 13680287 (Version 1)
Quarter: 2017Q2

REPORT INFORMATION
  Report Type: Spontaneous
  Country: TR (occurrence: TR)
  Receive Date: 20170622
  Receipt Date: 20170622
  Transmission Date: 20170830
  Serious: Yes (Hospitalization)
  Sender: FDA-Public Use
  Company Number: TR-ASTRAZENECA-2017SE64581

PATIENT
  Age: 72 Year
  Sex: Male

DRUGS (2)
  1. ZOLADEX [Suspect]
     Active Substance: GOSERELIN ACETATE
     Indication: PROSTATE CANCER
     Route: 058
     Dates: start: 20170505
  2. CASODEX [Suspect]
     Active Substance: BICALUTAMIDE
     Indication: PROSTATE CANCER
     Route: 048
     Dates: start: 20170428

REACTIONS (2)
  - Anaemia [Unknown]
  - Syncope [Unknown]
